FAERS Safety Report 6057371-2 (Version None)
Quarter: 2009Q1

REPORT INFORMATION
  Report Type: 
  Country: None (occurrence: None)
  Receive Date: 20090126
  Receipt Date: 20090126
  Transmission Date: 20090719
  Serious: Yes (Life-Threatening, Hospitalization)
  Sender: FDA-Public Use
  Company Number: None

PATIENT
  Age: 32 Year
  Sex: Female
  Weight: 88.4514 kg

DRUGS (2)
  1. TEGRETOL [Suspect]
     Indication: BIPOLAR DISORDER
     Dosage: 200MG TWICE DAILY
     Dates: start: 20081110, end: 20081219
  2. ZOLOFT [Concomitant]

REACTIONS (9)
  - FEAR [None]
  - MORBID THOUGHTS [None]
  - PAIN [None]
  - PNEUMONIA [None]
  - RASH [None]
  - SKIN BURNING SENSATION [None]
  - STAPHYLOCOCCAL INFECTION [None]
  - STEVENS-JOHNSON SYNDROME [None]
  - THROAT TIGHTNESS [None]
